FAERS Safety Report 7086342-2 (Version None)
Quarter: 2010Q4

REPORT INFORMATION
  Report Type: 
  Country: None (occurrence: None)
  Receive Date: 20101105
  Receipt Date: 20101030
  Transmission Date: 20110411
  Serious: Yes (Hospitalization)
  Sender: FDA-Public Use
  Company Number: JP-GENZYME-THYR-1000387

PATIENT

DRUGS (11)
  1. THYROGEN [Suspect]
     Indication: DIAGNOSTIC PROCEDURE
     Dosage: 0.9 MG, UNK
     Route: 030
     Dates: start: 20100315, end: 20100316
  2. RADIOACTIVE IODINE SOLUTION [Concomitant]
     Dosage: UNK
     Route: 048
     Dates: start: 20100317, end: 20100317
  3. FRANDOL [Concomitant]
     Dosage: UNK
  4. ARTIST [Concomitant]
     Dosage: UNK
  5. 8-HOUR BAYER [Concomitant]
     Dosage: UNK
  6. AMLODIPINE [Concomitant]
     Dosage: UNK
  7. DIOVAN [Concomitant]
  8. SIGMART [Concomitant]
  9. PRAVASTATIN SODIUM [Concomitant]
  10. ALFAROL [Concomitant]
  11. VITAMIN D [Concomitant]

REACTIONS (1)
  - ACUTE MYOCARDIAL INFARCTION [None]
